FAERS Safety Report 8167903-6 (Version None)
Quarter: 2012Q1

REPORT INFORMATION
  Report Type: 
  Country: None (occurrence: None)
  Receive Date: 20120227
  Receipt Date: 20120216
  Transmission Date: 20120608
  Serious: Yes (Death, Hospitalization)
  Sender: FDA-Public Use
  Company Number: US-GLAXOSMITHKLINE-A0829301A

PATIENT
  Sex: Male
  Weight: 111.4 kg

DRUGS (1)
  1. AVANDIA [Suspect]
     Indication: DIABETES MELLITUS
     Dosage: 8MG UNKNOWN
     Route: 048

REACTIONS (5)
  - ATRIAL FIBRILLATION [None]
  - HEART RATE INCREASED [None]
  - CARDIOVASCULAR DISORDER [None]
  - ARRHYTHMIA [None]
  - CARDIOMYOPATHY [None]
